FAERS Safety Report 8515990-5 (Version None)
Quarter: 2012Q3

REPORT INFORMATION
  Report Type: 
  Country: None (occurrence: None)
  Receive Date: 20120717
  Receipt Date: 20070226
  Transmission Date: 20120928
  Serious: Yes (Other)
  Sender: FDA-Public Use
  Company Number: CO-PFIZER INC-2012170961

PATIENT
  Age: 55 Year
  Sex: Female

DRUGS (3)
  1. NORVASC [Suspect]
     Dosage: 5 MG, EVERY 24 HOURS
  2. LIPITOR [Suspect]
     Dosage: 10 MG, EVERY 24 HOURS
  3. ACCURETIC [Suspect]
     Dosage: 20/12.5 MG EVERY 12 HOURS

REACTIONS (3)
  - HEADACHE [None]
  - PAIN IN EXTREMITY [None]
  - HYPERTENSIVE EMERGENCY [None]
